FAERS Safety Report 18997607 (Version 1)
Quarter: 2021Q1

REPORT INFORMATION
  Report Type: Spontaneous
  Country: KR (occurrence: KR)
  Receive Date: 20210311
  Receipt Date: 20210311
  Transmission Date: 20210420
  Serious: Yes (Other)
  Sender: FDA-Public Use
  Company Number: KR-SUN PHARMACEUTICAL INDUSTRIES LTD-2021R1-285345

PATIENT
  Age: 54 Year
  Sex: Male

DRUGS (4)
  1. PROPAFENONE. [Suspect]
     Active Substance: PROPAFENONE
     Indication: ATRIAL FIBRILLATION
     Dosage: 325 MILLIGRAM, BID
     Route: 065
  2. PROPAFENONE. [Suspect]
     Active Substance: PROPAFENONE
     Dosage: 600 MILLIGRAM , UNK
     Route: 065
  3. PROPAFENONE. [Suspect]
     Active Substance: PROPAFENONE
     Dosage: 600 MILLIGRAM , TWICE
     Route: 065
  4. PROPAFENONE. [Suspect]
     Active Substance: PROPAFENONE
     Dosage: 600 MILLIGRAM, TID
     Route: 065

REACTIONS (2)
  - Overdose [Unknown]
  - Ventricular tachycardia [Recovered/Resolved]
